FAERS Safety Report 7950232-0 (Version None)
Quarter: 2011Q4

REPORT INFORMATION
  Report Type: 
  Country: None (occurrence: None)
  Receive Date: 20111130
  Receipt Date: 20111116
  Transmission Date: 20120403
  Serious: Yes (Hospitalization)
  Sender: FDA-Public Use
  Company Number: US-BAYER-2011-029197

PATIENT
  Age: 25 Year
  Sex: Female
  Weight: 138 kg

DRUGS (8)
  1. IBUPROFEN [Concomitant]
     Indication: HEADACHE
     Dosage: UNK
     Route: 048
  2. TOPAMAX [Concomitant]
     Indication: MIGRAINE
     Dosage: 200 MG, HS
     Route: 048
     Dates: start: 20060101, end: 20090101
  3. LOTRIMIN [Concomitant]
  4. PROZAC [Concomitant]
     Indication: ANXIETY
     Dosage: 20 MG, QD
     Route: 048
  5. RITALIN [Concomitant]
     Indication: ATTENTION DEFICIT/HYPERACTIVITY DISORDER
     Dosage: 10 MG, BID
     Route: 048
  6. YASMIN [Suspect]
     Indication: CONTRACEPTION
     Dosage: UNK
     Route: 048
     Dates: start: 20050101, end: 20090101
  7. ACETAMINOPHEN [Concomitant]
     Indication: HEADACHE
     Route: 048
  8. YASMIN [Suspect]
     Indication: MENSTRUATION IRREGULAR

REACTIONS (9)
  - CHOLECYSTITIS ACUTE [None]
  - INJURY [None]
  - ANXIETY [None]
  - ABDOMINAL PAIN [None]
  - EMOTIONAL DISTRESS [None]
  - DEPRESSION [None]
  - GALLBLADDER DISORDER [None]
  - PAIN [None]
  - GENERAL PHYSICAL HEALTH DETERIORATION [None]
